FAERS Safety Report 7891320-7 (Version None)
Quarter: 2011Q4

REPORT INFORMATION
  Report Type: 
  Country: None (occurrence: None)
  Receive Date: 20111103
  Receipt Date: 20110801
  Transmission Date: 20120403
  Serious: No
  Sender: FDA-Public Use
  Company Number: US-AMGEN-USASP2011038854

PATIENT
  Age: 40 Year
  Sex: Male
  Weight: 86.2 kg

DRUGS (2)
  1. ENBREL [Suspect]
     Indication: ANKYLOSING SPONDYLITIS
     Dosage: 50 MG, QWK
     Dates: start: 20110101
  2. INDOMETHACIN [Concomitant]
     Dosage: UNK

REACTIONS (1)
  - INJECTION SITE PAIN [None]
